FAERS Safety Report 24467944 (Version 1)
Quarter: 2024Q4

REPORT INFORMATION
  Report Type: Spontaneous
  Country: US (occurrence: US)
  Receive Date: 20241018
  Receipt Date: 20241018
  Transmission Date: 20250115
  Serious: No
  Sender: Phathom Pharmaceuticals
  Company Number: US-PHATHOM PHARMACEUTICALS INC.-2024PHT00817

PATIENT
  Age: 71 Year
  Sex: Female

DRUGS (1)
  1. VOQUEZNA [Suspect]
     Active Substance: VONOPRAZAN FUMARATE
     Indication: Dysgeusia
     Dosage: 10 MG, 1X/DAY
     Route: 048
     Dates: start: 202408, end: 202408

REACTIONS (5)
  - Pollakiuria [Recovering/Resolving]
  - Hypersensitivity [Recovered/Resolved]
  - Pruritus [Recovering/Resolving]
  - Tongue pruritus [Recovering/Resolving]
  - Lip swelling [Recovering/Resolving]

NARRATIVE: CASE EVENT DATE: 20240829
